FAERS Safety Report 19027700 (Version 1)
Quarter: 2021Q1

REPORT INFORMATION
  Report Type: Spontaneous
  Country: EG (occurrence: EG)
  Receive Date: 20210318
  Receipt Date: 20210318
  Transmission Date: 20210420
  Serious: Yes (Other)
  Sender: FDA-Public Use
  Company Number: EG-GLAXOSMITHKLINE-EGCH2021009700

PATIENT

DRUGS (1)
  1. VOLTAREN [Suspect]
     Active Substance: DICLOFENAC SODIUM
     Indication: PRODUCT USED FOR UNKNOWN INDICATION
     Dosage: 1 MG/KG, AMPOULE
     Route: 065

REACTIONS (3)
  - Blood pressure increased [Unknown]
  - Urine output decreased [Unknown]
  - Volume blood increased [Unknown]
